FAERS Safety Report 24857626 (Version 1)
Quarter: 2025Q1

REPORT INFORMATION
  Report Type: Report from Study
  Country: US (occurrence: US)
  Receive Date: 20250117
  Receipt Date: 20250117
  Transmission Date: 20250408
  Serious: No
  Sender: TAKEDA
  Company Number: US-TAKEDA-US201847555

PATIENT
  Sex: Female

DRUGS (4)
  1. LANADELUMAB [Suspect]
     Active Substance: LANADELUMAB
     Indication: Immune system disorder
     Dosage: 300 MILLIGRAM, Q2WEEKS
     Dates: start: 201809
  2. LANADELUMAB [Suspect]
     Active Substance: LANADELUMAB
  3. LANADELUMAB [Suspect]
     Active Substance: LANADELUMAB
  4. KALBITOR [Suspect]
     Active Substance: ECALLANTIDE
     Indication: Immune system disorder

REACTIONS (5)
  - Urticaria [Unknown]
  - Weight decreased [Unknown]
  - Ligament sprain [Unknown]
  - Weight increased [Unknown]
  - Hereditary angioedema [Recovered/Resolved]
